FAERS Safety Report 5031927-8 (Version None)
Quarter: 2006Q2

REPORT INFORMATION
  Report Type: 
  Country: None (occurrence: None)
  Receive Date: 20060621
  Receipt Date: 20051223
  Transmission Date: 20061013
  Serious: No
  Sender: FDA-Public Use
  Company Number: US-AMGEN-US162794

PATIENT
  Sex: Male

DRUGS (8)
  1. ARANESP [Suspect]
     Indication: DIALYSIS
     Route: 058
     Dates: start: 20050401, end: 20051219
  2. MEDICINALPRODUCT NOT SPECIFIED BY SENDER [Concomitant]
  3. MEDICINALPRODUCT NOT SPECIFIED BY SENDER [Concomitant]
  4. MEDICINALPRODUCT NOT SPECIFIED BY SENDER [Concomitant]
  5. MEDICINALPRODUCT NOT SPECIFIED BY SENDER [Concomitant]
  6. MEDICINALPRODUCT NOT SPECIFIED BY SENDER [Concomitant]
  7. MEDICINALPRODUCT NOT SPECIFIED BY SENDER [Concomitant]
  8. MEDICINALPRODUCT NOT SPECIFIED BY SENDER [Concomitant]

REACTIONS (3)
  - INFECTION [None]
  - IRON DEFICIENCY [None]
  - THERAPEUTIC RESPONSE DECREASED [None]
